FAERS Safety Report 8152715-X (Version None)
Quarter: 2012Q1

REPORT INFORMATION
  Report Type: 
  Country: None (occurrence: None)
  Receive Date: 20120103
  Receipt Date: 20111122
  Transmission Date: 20120608
  Serious: No
  Sender: FDA-Public Use
  Company Number: AE-2011-002084

PATIENT
  Sex: Male

DRUGS (4)
  1. RIBAVIRIN [Concomitant]
  2. PEGASYS [Concomitant]
  3. ALTACE [Concomitant]
  4. INCIVEK [Suspect]
     Dosage: ORAL
     Route: 048
     Dates: start: 20110723, end: 20111002

REACTIONS (1)
  - RASH PAPULAR [None]
